FAERS Safety Report 10249358 (Version 3)
Quarter: 2015Q3

REPORT INFORMATION
  Report Type: Spontaneous
  Country: US (occurrence: US)
  Receive Date: 20140620
  Receipt Date: 20150804
  Transmission Date: 20151125
  Serious: Yes (Death, Life-Threatening, Hospitalization, Other)
  Sender: FDA-Public Use
  Company Number: US-MERCK-1406USA009626

PATIENT
  Sex: Female
  Weight: 122.45 kg

DRUGS (18)
  1. CELEBREX [Concomitant]
     Active Substance: CELECOXIB
     Dosage: 200-400 MG, DAILY
     Route: 048
  2. FLEXERIL [Concomitant]
     Active Substance: CYCLOBENZAPRINE HYDROCHLORIDE
     Dosage: 10 MG, TID
     Route: 048
  3. LANTUS [Concomitant]
     Active Substance: INSULIN GLARGINE
     Indication: TYPE 2 DIABETES MELLITUS
     Dosage: 100 UNITS/ML 3-35 UNITS Q HS,
  4. METOPROLOL TARTRATE. [Concomitant]
     Active Substance: METOPROLOL TARTRATE
     Dosage: 100-200 MG, DAILY
  5. SYNTHROID [Concomitant]
     Active Substance: LEVOTHYROXINE SODIUM
     Dosage: 0.125 DF, DAILY
     Route: 048
  6. DEXILANT [Concomitant]
     Active Substance: DEXLANSOPRAZOLE
     Dosage: 60 MG, DAILY
  7. JANUVIA [Suspect]
     Active Substance: SITAGLIPTIN PHOSPHATE
     Indication: TYPE 2 DIABETES MELLITUS
     Dosage: 100 MG, DAILY
     Route: 048
     Dates: start: 20110228, end: 20121228
  8. ZOFRAN [Concomitant]
     Active Substance: ONDANSETRON HYDROCHLORIDE
     Dosage: 4-8  MG, Q 8 TID PRN
  9. IMODIUM [Concomitant]
     Active Substance: LOPERAMIDE HYDROCHLORIDE
     Dosage: 2 MG, 1 Q6 HOURS
     Route: 048
  10. ZOLOFT [Concomitant]
     Active Substance: SERTRALINE HYDROCHLORIDE
     Dosage: 100 MG, DAILY
     Route: 048
  11. CARAFATE [Concomitant]
     Active Substance: SUCRALFATE
     Dosage: 1 G, AC AND HS
  12. HYDROCODONE [Concomitant]
     Active Substance: HYDROCODONE
     Dosage: 5/500 MG, 1-2 Q6-8 HRS PRN
  13. TRIAMCINOLONE [Concomitant]
     Active Substance: TRIAMCINOLONE
     Dosage: 0.1%, APPLY BID
  14. JANUVIA [Suspect]
     Active Substance: SITAGLIPTIN PHOSPHATE
     Dosage: 50 MG, DAILY
     Route: 048
     Dates: start: 20120927, end: 20121228
  15. ISOSORBIDE MONONITRATE. [Concomitant]
     Active Substance: ISOSORBIDE MONONITRATE
     Dosage: 20 MG, TID
  16. PREVACID [Concomitant]
     Active Substance: LANSOPRAZOLE
     Dosage: 30 MG, BID
     Route: 048
  17. HUMALOG [Concomitant]
     Active Substance: INSULIN LISPRO
     Indication: TYPE 2 DIABETES MELLITUS
     Dosage: 100 UNITS/ML SLIDING SCALE
     Route: 058
  18. LIPITOR [Concomitant]
     Active Substance: ATORVASTATIN CALCIUM
     Dosage: 10 MG, HS
     Route: 048

REACTIONS (52)
  - Osteoarthritis [Unknown]
  - Osteomyelitis [Unknown]
  - Renal cyst [Unknown]
  - Toe amputation [Unknown]
  - Staphylococcal infection [Unknown]
  - Iron deficiency [Unknown]
  - Adenocarcinoma pancreas [Fatal]
  - Urinary tract infection [Unknown]
  - Acute kidney injury [Unknown]
  - Diabetes mellitus inadequate control [Unknown]
  - Diabetic neuropathy [Unknown]
  - Duodenal ulcer [Unknown]
  - Cough [Unknown]
  - Nephrolithiasis [Unknown]
  - Hypertension [Unknown]
  - Intervertebral disc degeneration [Unknown]
  - Infection [Unknown]
  - Dyslipidaemia [Unknown]
  - Chills [Unknown]
  - Cellulitis [Unknown]
  - Rales [Unknown]
  - Drug ineffective [Unknown]
  - Foot operation [Unknown]
  - Appendicectomy [Unknown]
  - Pleural effusion [Unknown]
  - Cataract operation [Unknown]
  - Surgery [Unknown]
  - Asthenia [Unknown]
  - Anaemia [Unknown]
  - Cataract [Unknown]
  - Hidradenitis [Unknown]
  - Oedema peripheral [Unknown]
  - Diabetic retinopathy [Unknown]
  - Hypothyroidism [Unknown]
  - Adverse drug reaction [Unknown]
  - Hypomagnesaemia [Unknown]
  - Dyspnoea [Unknown]
  - Headache [Unknown]
  - Bile duct stent insertion [Unknown]
  - Electrolyte imbalance [Unknown]
  - Gastric ulcer [Unknown]
  - Rotator cuff syndrome [Unknown]
  - Skin ulcer [Unknown]
  - Meningitis viral [Recovering/Resolving]
  - Pyrexia [Unknown]
  - Peptic ulcer [Unknown]
  - Metastases to lymph nodes [Unknown]
  - Gastric ulcer haemorrhage [Unknown]
  - Thyroid neoplasm [Unknown]
  - Hypogammaglobulinaemia [Unknown]
  - Fibromyalgia [Unknown]
  - Gastrooesophageal reflux disease [Unknown]

NARRATIVE: CASE EVENT DATE: 201209
